FAERS Safety Report 13373886 (Version 1)
Quarter: 2017Q1

REPORT INFORMATION
  Report Type: Spontaneous
  Country: MX (occurrence: MX)
  Receive Date: 20170327
  Receipt Date: 20170327
  Transmission Date: 20170429
  Serious: Yes (Other)
  Sender: FDA-Public Use
  Company Number: MX-GUERBET LLC-1064687

PATIENT
  Age: 30 Year
  Sex: Female
  Weight: 57.5 kg

DRUGS (1)
  1. OPTIRAY [Suspect]
     Active Substance: IOVERSOL
     Indication: COMPUTERISED TOMOGRAM
     Route: 042
     Dates: start: 20170306, end: 20170306

REACTIONS (5)
  - Tachycardia [Recovered/Resolved with Sequelae]
  - Chills [Recovering/Resolving]
  - Bronchospasm [Recovered/Resolved]
  - Hypertension [Recovered/Resolved with Sequelae]
  - Pyrexia [Unknown]

NARRATIVE: CASE EVENT DATE: 20170306
